FAERS Safety Report 21075695 (Version 1)
Quarter: 2022Q3

REPORT INFORMATION
  Report Type: Spontaneous
  Country: FR (occurrence: FR)
  Receive Date: 20220713
  Receipt Date: 20220713
  Transmission Date: 20221027
  Serious: Yes (Other)
  Sender: FDA-Public Use
  Company Number: FR-SUN PHARMACEUTICAL INDUSTRIES LTD-2022RR-344278

PATIENT
  Age: 64 Year
  Sex: Female
  Weight: 62 kg

DRUGS (5)
  1. OCTREOTIDE [Suspect]
     Active Substance: OCTREOTIDE
     Indication: Neuroendocrine tumour
     Dosage: 30 MILLIGRAM, 1 DOSE
     Route: 065
  2. OCTREOTIDE [Suspect]
     Active Substance: OCTREOTIDE
     Indication: Hypoglycaemia
  3. SUNITINIB [Suspect]
     Active Substance: SUNITINIB
     Indication: Neuroendocrine tumour
     Dosage: 37.5 MILLIGRAM, DAILY
     Route: 065
     Dates: end: 202006
  4. CAPECITABINE [Suspect]
     Active Substance: CAPECITABINE
     Indication: Neuroendocrine tumour
     Dosage: 6 CYCLES
     Route: 065
     Dates: end: 20201213
  5. TEMOZOLOMIDE [Suspect]
     Active Substance: TEMOZOLOMIDE
     Indication: Neuroendocrine tumour
     Dosage: 6 CYCLES
     Route: 065
     Dates: end: 20201213

REACTIONS (4)
  - Disease progression [Unknown]
  - Disease recurrence [Unknown]
  - Thrombocytopenia [Unknown]
  - Therapeutic product effect incomplete [Unknown]
